FAERS Safety Report 7144258-7 (Version None)
Quarter: 2010Q4

REPORT INFORMATION
  Report Type: 
  Country: None (occurrence: None)
  Receive Date: 20101208
  Receipt Date: 20101108
  Transmission Date: 20110411
  Serious: No
  Sender: FDA-Public Use
  Company Number: US-BAYER-2010-000313

PATIENT
  Sex: Female
  Weight: 77.098 kg

DRUGS (4)
  1. ALEVE (CAPLET) [Suspect]
     Indication: ARTHRALGIA
     Dosage: 220 MG, ONCE
     Dates: start: 20101108
  2. HYDROCHLOROTHIAZIDE [Concomitant]
  3. AMLODIPINE BESYLATE [Concomitant]
  4. MULTIVITAMIN PREPARATION + MINERAL SUPPLEMENT [Concomitant]

REACTIONS (1)
  - ARTHRALGIA [None]
